FAERS Safety Report 10050954 (Version 2)
Quarter: 2014Q2

REPORT INFORMATION
  Report Type: Spontaneous
  Country: US (occurrence: US)
  Receive Date: 20140401
  Receipt Date: 20140403
  Transmission Date: 20141212
  Serious: Yes (Other)
  Sender: FDA-Public Use
  Company Number: US-BAYER-2014-044113

PATIENT
  Age: 47 Year
  Sex: Male
  Weight: 88.44 kg

DRUGS (2)
  1. ALEVE CAPLET [Suspect]
     Indication: TOOTHACHE
     Dosage: 2 DF, ONCE
     Route: 048
     Dates: start: 20140320, end: 20140320
  2. ALEVE CAPLET [Suspect]
     Indication: MOUTH SWELLING

REACTIONS (14)
  - Hypersensitivity [Not Recovered/Not Resolved]
  - Peripheral swelling [Not Recovered/Not Resolved]
  - Urticaria [Not Recovered/Not Resolved]
  - Ocular hyperaemia [Not Recovered/Not Resolved]
  - Pruritus generalised [Not Recovered/Not Resolved]
  - Generalised erythema [Not Recovered/Not Resolved]
  - Lip discolouration [Not Recovered/Not Resolved]
  - Lip swelling [Not Recovered/Not Resolved]
  - Swelling [Not Recovered/Not Resolved]
  - Swollen tongue [Not Recovered/Not Resolved]
  - Ear swelling [Not Recovered/Not Resolved]
  - Abdominal distension [None]
  - Intentional product misuse [None]
  - Dyspnoea [Not Recovered/Not Resolved]
